FAERS Safety Report 9426727 (Version 1)
Quarter: 2013Q3

REPORT INFORMATION
  Report Type: Spontaneous
  Country: US (occurrence: US)
  Receive Date: 20130730
  Receipt Date: 20130730
  Transmission Date: 20140515
  Serious: Yes (Death)
  Sender: FDA-Public Use
  Company Number: US-SANOFI-AVENTIS-2012SA054089

PATIENT
  Age: 85 Year
  Sex: Female

DRUGS (2)
  1. AMBIEN CR [Suspect]
     Route: 048
     Dates: start: 20060217
  2. MIRTAZAPINE [Suspect]
     Indication: DEPRESSION

REACTIONS (1)
  - Completed suicide [Fatal]
